FAERS Safety Report 12268491 (Version 1)
Quarter: 2016Q2

REPORT INFORMATION
  Report Type: Spontaneous
  Country: None (occurrence: CN)
  Receive Date: 20160414
  Receipt Date: 20160414
  Transmission Date: 20160815
  Serious: Yes (Other)
  Sender: FDA-Public Use
  Company Number: CN-MERCK KGAA-1050559

PATIENT

DRUGS (1)
  1. NOVOTHYROX [Suspect]
     Active Substance: LEVOTHYROXINE SODIUM

REACTIONS (6)
  - Maternal exposure during pregnancy [None]
  - Blood thyroid stimulating hormone decreased [None]
  - Regurgitation [None]
  - Blood glucose increased [None]
  - Complication of pregnancy [None]
  - Weight decreased [None]
